FAERS Safety Report 7011751-7 (Version None)
Quarter: 2010Q3

REPORT INFORMATION
  Report Type: 
  Country: None (occurrence: None)
  Receive Date: 20100923
  Receipt Date: 20090817
  Transmission Date: 20110219
  Serious: No
  Sender: FDA-Public Use
  Company Number: US-WYE-H10636209

PATIENT
  Sex: Female
  Weight: 74.91 kg

DRUGS (1)
  1. PREMARIN [Suspect]
     Indication: HORMONE REPLACEMENT THERAPY
     Dosage: WAS TAKING 1.25MG DAILY FOR MANY YEARS, THEN TOOK 3 OF THE 0.3MG TABLETS, THEN 0.6MG DAILY, THEN 0.3
     Route: 048
     Dates: start: 19940101

REACTIONS (4)
  - DRY EYE [None]
  - NOCTURIA [None]
  - PRODUCT QUALITY ISSUE [None]
  - THIRST [None]
